FAERS Safety Report 14128185 (Version 1)
Quarter: 2017Q4

REPORT INFORMATION
  Report Type: Spontaneous
  Country: US (occurrence: US)
  Receive Date: 20171025
  Receipt Date: 20171025
  Transmission Date: 20180321
  Serious: No
  Sender: FDA-Public Use
  Company Number: None

PATIENT
  Age: 63 Year
  Sex: Female
  Weight: 70.65 kg

DRUGS (2)
  1. PROLIA [Suspect]
     Active Substance: DENOSUMAB
     Indication: OSTEOPOROSIS
     Dosage: ?          OTHER FREQUENCY:ONCE EVERY 6 MONTH;OTHER ROUTE:INJECTED SUBCUTANEOUS?
     Dates: start: 20170601, end: 20170601
  2. CALCIUM [Concomitant]
     Active Substance: CALCIUM

REACTIONS (6)
  - Arthralgia [None]
  - Back pain [None]
  - Myalgia [None]
  - Musculoskeletal pain [None]
  - Vertigo [None]
  - Dizziness [None]

NARRATIVE: CASE EVENT DATE: 20170701
